FAERS Safety Report 5370933-0 (Version None)
Quarter: 2007Q2

REPORT INFORMATION
  Report Type: 
  Country: None (occurrence: None)
  Receive Date: 20070626
  Receipt Date: 20070424
  Transmission Date: 20071010
  Serious: Yes (Other)
  Sender: FDA-Public Use
  Company Number: US-PFIZER INC-2006029517

PATIENT
  Sex: Female
  Weight: 111.6 kg

DRUGS (1)
  1. BEXTRA [Suspect]
     Indication: BACK PAIN

REACTIONS (12)
  - ABDOMINAL PAIN [None]
  - BIPOLAR DISORDER [None]
  - FIBROMYALGIA [None]
  - HEADACHE [None]
  - HYPERSENSITIVITY [None]
  - LIP SWELLING [None]
  - NODULE [None]
  - STEVENS-JOHNSON SYNDROME [None]
  - SWELLING FACE [None]
  - URTICARIA [None]
  - VAGINAL DISORDER [None]
  - VOMITING [None]
